FAERS Safety Report 16204914 (Version 8)
Quarter: 2019Q4

REPORT INFORMATION
  Report Type: Report from Study
  Country: US (occurrence: US)
  Receive Date: 20190416
  Receipt Date: 20191002
  Transmission Date: 20200122
  Serious: Yes (Hospitalization, Other)
  Sender: FDA-Public Use
  Company Number: US-ACTELION-A-US2019-186857

PATIENT
  Age: 79 Year
  Sex: Female
  Weight: 78.91 kg

DRUGS (32)
  1. OPSUMIT [Suspect]
     Active Substance: MACITENTAN
     Indication: PULMONARY HYPERTENSION
     Dosage: 10 MG, QD
     Route: 048
  2. UPTRAVI [Suspect]
     Active Substance: SELEXIPAG
     Dosage: 1200 UNK
     Route: 048
  3. SPIRIVA [Concomitant]
     Active Substance: TIOTROPIUM BROMIDE MONOHYDRATE
  4. ALBUTEROL. [Concomitant]
     Active Substance: ALBUTEROL
  5. TYLENOL [Concomitant]
     Active Substance: ACETAMINOPHEN
  6. TIOTROPIUM [Concomitant]
     Active Substance: TIOTROPIUM
  7. UPTRAVI [Suspect]
     Active Substance: SELEXIPAG
     Dosage: 800 MCG, BID
     Route: 048
     Dates: start: 20190303
  8. UPTRAVI [Suspect]
     Active Substance: SELEXIPAG
     Dosage: 1600 MCG, BID
     Route: 048
     Dates: start: 20190406
  9. UPTRAVI [Suspect]
     Active Substance: SELEXIPAG
     Dosage: 200 MCG, QD
     Route: 048
  10. ADEMPAS [Concomitant]
     Active Substance: RIOCIGUAT
  11. MAXZIDE [Concomitant]
     Active Substance: HYDROCHLOROTHIAZIDE\TRIAMTERENE
  12. FERROUS SULFATE. [Concomitant]
     Active Substance: FERROUS SULFATE
  13. ELIQUIS [Concomitant]
     Active Substance: APIXABAN
  14. ALDACTONE [Concomitant]
     Active Substance: SPIRONOLACTONE
     Dosage: 25 MG, QD
  15. PREDNISONE. [Concomitant]
     Active Substance: PREDNISONE
  16. BENZONATATE. [Concomitant]
     Active Substance: BENZONATATE
  17. LOSARTAN. [Concomitant]
     Active Substance: LOSARTAN
  18. OXYGEN. [Concomitant]
     Active Substance: OXYGEN
  19. UPTRAVI [Suspect]
     Active Substance: SELEXIPAG
     Dosage: 200 MCG, BID
     Route: 048
  20. MONTELUKAST [Concomitant]
     Active Substance: MONTELUKAST SODIUM
  21. UPTRAVI [Suspect]
     Active Substance: SELEXIPAG
     Dosage: 1600 MCG, QD
     Route: 048
  22. VITAMIN D [Concomitant]
     Active Substance: VITAMIN D NOS
  23. PROAIR HFA [Concomitant]
     Active Substance: ALBUTEROL SULFATE
  24. UPTRAVI [Suspect]
     Active Substance: SELEXIPAG
     Indication: PULMONARY HYPERTENSION
     Dosage: 1000 MCG, BID
     Route: 048
  25. LEVALBUTEROL. [Concomitant]
     Active Substance: LEVALBUTEROL
  26. IPRATROPIUM [Concomitant]
     Active Substance: IPRATROPIUM
  27. AMLODIPINE [Concomitant]
     Active Substance: AMLODIPINE BESYLATE
  28. TRIAMTERENE AND HYDROCHLOROTHIAZID [Concomitant]
     Active Substance: HYDROCHLOROTHIAZIDE\TRIAMTERENE
  29. UPTRAVI [Suspect]
     Active Substance: SELEXIPAG
     Dosage: 800 MCG, BID
     Route: 048
  30. DYMISTA [Concomitant]
     Active Substance: AZELASTINE HYDROCHLORIDE\FLUTICASONE PROPIONATE
  31. BUMETANIDE. [Concomitant]
     Active Substance: BUMETANIDE
     Dosage: 0.5 MG, PRN
  32. ADVAIR HFA [Concomitant]
     Active Substance: FLUTICASONE PROPIONATE\SALMETEROL XINAFOATE

REACTIONS (54)
  - Blood creatinine abnormal [Recovering/Resolving]
  - Lung neoplasm malignant [Not Recovered/Not Resolved]
  - Dyspepsia [Unknown]
  - Dyspnoea exertional [Recovering/Resolving]
  - Pulmonary mass [Recovering/Resolving]
  - Pneumonia [Unknown]
  - Productive cough [Recovering/Resolving]
  - Nasopharyngitis [Unknown]
  - Seasonal allergy [Unknown]
  - Myalgia [Unknown]
  - Pain in jaw [Unknown]
  - Deafness unilateral [Unknown]
  - Granulocyte count decreased [Recovering/Resolving]
  - Somnolence [Recovering/Resolving]
  - Respiratory acidosis [Recovering/Resolving]
  - Pruritus [Unknown]
  - Upper-airway cough syndrome [Unknown]
  - Hypoxia [Unknown]
  - Anosmia [Unknown]
  - Platelet disorder [Recovering/Resolving]
  - Blood albumin abnormal [Recovering/Resolving]
  - Nasal congestion [Unknown]
  - Decreased appetite [Unknown]
  - Abdominal discomfort [Unknown]
  - Nausea [Unknown]
  - Radiation pneumonitis [Unknown]
  - Dry skin [Unknown]
  - Blood urea abnormal [Recovering/Resolving]
  - Chronic obstructive pulmonary disease [Recovering/Resolving]
  - Unevaluable event [Recovering/Resolving]
  - Bronchiectasis [Unknown]
  - Iron deficiency anaemia [Unknown]
  - Atelectasis [Unknown]
  - Pericardial effusion [Recovering/Resolving]
  - Headache [Unknown]
  - Diarrhoea [Unknown]
  - Pain in extremity [Unknown]
  - Haemoptysis [Unknown]
  - Osteoarthritis [Unknown]
  - Weight decreased [Unknown]
  - White blood cell count decreased [Recovering/Resolving]
  - Ear discomfort [Unknown]
  - Pain [Unknown]
  - Ageusia [Unknown]
  - Acute respiratory failure [Recovering/Resolving]
  - Haemoglobin decreased [Unknown]
  - Blood glucose abnormal [Recovering/Resolving]
  - Red blood cell count decreased [Recovering/Resolving]
  - Dyspnoea [Recovering/Resolving]
  - Influenza like illness [Recovered/Resolved]
  - Therapy non-responder [Unknown]
  - Ear pain [Unknown]
  - Inappropriate schedule of product administration [Unknown]
  - Alopecia [Unknown]

NARRATIVE: CASE EVENT DATE: 20190304
